FAERS Safety Report 23170360 (Version 1)
Quarter: 2023Q4

REPORT INFORMATION
  Report Type: Spontaneous
  Country: CN (occurrence: CN)
  Receive Date: 20231110
  Receipt Date: 20231110
  Transmission Date: 20240110
  Serious: Yes (Other)
  Sender: FDA-Public Use
  Company Number: CN-MLMSERVICE-20231030-4629160-1

PATIENT
  Age: 3 Decade
  Sex: Male
  Weight: 120 kg

DRUGS (2)
  1. CARBOPLATIN [Suspect]
     Active Substance: CARBOPLATIN
     Indication: Rosai-Dorfman syndrome
     Dosage: MONTHLY TWO TIMES
  2. VINDESINE [Suspect]
     Active Substance: VINDESINE
     Indication: Rosai-Dorfman syndrome
     Dosage: MONTHLY TWO TIMES

REACTIONS (2)
  - Alanine aminotransferase increased [Recovering/Resolving]
  - Aspartate aminotransferase increased [Recovering/Resolving]
